FAERS Safety Report 9525704 (Version 1)
Quarter: 2013Q3

REPORT INFORMATION
  Report Type: Spontaneous
  Country: US (occurrence: US)
  Receive Date: 20130916
  Receipt Date: 20130916
  Transmission Date: 20140515
  Serious: No
  Sender: FDA-Public Use
  Company Number: US-B.I. PHARMACEUTICALS,INC./RIDGEFIELD-2013-BI-27713BP

PATIENT
  Age: 69 Year
  Sex: Male

DRUGS (4)
  1. TRADJENTA [Suspect]
     Indication: TYPE 2 DIABETES MELLITUS
     Dosage: 5 MG
     Route: 048
     Dates: start: 20130904
  2. MELOXICAM [Concomitant]
     Dosage: 7.5 MG
     Route: 048
  3. GABAPENTIN [Concomitant]
     Dosage: 1200 MG
     Route: 048
  4. LEVEMIR [Concomitant]
     Dosage: 64 U
     Route: 058

REACTIONS (2)
  - Mood altered [Recovered/Resolved]
  - Urinary incontinence [Recovered/Resolved]
